FAERS Safety Report 17159673 (Version 1)
Quarter: 2019Q4

REPORT INFORMATION
  Report Type: Spontaneous
  Country: PT (occurrence: PT)
  Receive Date: 20191216
  Receipt Date: 20191216
  Transmission Date: 20200122
  Serious: Yes (Disabling)
  Sender: FDA-Public Use
  Company Number: PT-BAUSCH-BL-2019-065044

PATIENT
  Age: 61 Year
  Sex: Female

DRUGS (1)
  1. KYNTHEUM [Suspect]
     Active Substance: BRODALUMAB
     Indication: PSORIASIS
     Dosage: 1 INJECTION AT WEEKS 0, 1, AND 2 FOLLOWED BY 210 MG EVERY 2 WEEKS
     Route: 058
     Dates: start: 20191010

REACTIONS (2)
  - Lip ulceration [Unknown]
  - Aphthous ulcer [Unknown]

NARRATIVE: CASE EVENT DATE: 201910
